FAERS Safety Report 24440919 (Version 2)
Quarter: 2024Q4

REPORT INFORMATION
  Report Type: Report from Study
  Country: MX (occurrence: MX)
  Receive Date: 20241016
  Receipt Date: 20241017
  Transmission Date: 20250115
  Serious: No
  Sender: ROCHE
  Company Number: MX-ROCHE-3392046

PATIENT
  Age: 11 Year
  Sex: Male
  Weight: 72.8 kg

DRUGS (1)
  1. EMICIZUMAB [Suspect]
     Active Substance: EMICIZUMAB
     Indication: Factor VIII deficiency
     Route: 058
     Dates: start: 202012

REACTIONS (1)
  - Dental caries [Recovering/Resolving]

NARRATIVE: CASE EVENT DATE: 20230329
